FAERS Safety Report 9326332 (Version 2)
Quarter: 2013Q2

REPORT INFORMATION
  Report Type: Spontaneous
  Country: US (occurrence: US)
  Receive Date: 20130604
  Receipt Date: 20130618
  Transmission Date: 20140414
  Serious: Yes (Death)
  Sender: FDA-Public Use
  Company Number: US-FRI-1000045510

PATIENT
  Age: 78 Year
  Sex: Male
  Weight: 58.9 kg

DRUGS (16)
  1. VIIBRYD [Suspect]
     Indication: DEPRESSION
     Dosage: 10 MG
     Route: 048
     Dates: start: 20130509, end: 20130515
  2. VIIBRYD [Suspect]
     Dosage: 20 MG
     Route: 048
     Dates: start: 20130516, end: 20130521
  3. IRON [Concomitant]
     Indication: ANAEMIA
     Dosage: 325 MG
     Route: 048
  4. HYDROXYUREA [Concomitant]
     Dosage: 500 MG EVERY OTHER DAY
     Route: 048
  5. PREDNISONE [Concomitant]
     Dosage: 15 MG
     Route: 048
  6. VICODIN [Concomitant]
     Indication: PAIN
     Dosage: 5/325 MG EVERY 8 HOURS AS NEEDED
     Route: 048
  7. CETIRIZINE [Concomitant]
     Dosage: 10 MG
     Route: 048
  8. SPIRIVA [Concomitant]
     Indication: CHRONIC OBSTRUCTIVE PULMONARY DISEASE
     Dosage: 18 MCG
  9. WARFARIN [Concomitant]
     Indication: ATRIAL FIBRILLATION
  10. WARFARIN [Concomitant]
     Indication: PULMONARY EMBOLISM
  11. WARFARIN [Concomitant]
     Indication: DEEP VEIN THROMBOSIS
  12. SYMBICORT [Concomitant]
     Indication: CHRONIC OBSTRUCTIVE PULMONARY DISEASE
     Dosage: TWICE DAILY
  13. XANAX [Concomitant]
     Indication: ANXIETY
     Dosage: 1 MG
     Route: 048
  14. LISINOPRIL [Concomitant]
     Indication: HYPERTENSION
     Dosage: 2.5 MG
     Route: 048
  15. CARVEDILOL [Concomitant]
     Indication: HYPERTENSION
     Dosage: 12.5 MG
     Route: 048
  16. TAMSULOSIN [Concomitant]
     Indication: BENIGN PROSTATIC HYPERPLASIA
     Dosage: 0.8 MG
     Route: 048

REACTIONS (1)
  - Completed suicide [Fatal]
